FAERS Safety Report 5384176-8 (Version None)
Quarter: 2007Q3

REPORT INFORMATION
  Report Type: 
  Country: None (occurrence: None)
  Receive Date: 20070711
  Receipt Date: 20070709
  Transmission Date: 20080115
  Serious: Yes (Other)
  Sender: FDA-Public Use
  Company Number: A0655074A

PATIENT
  Age: 64 Year
  Sex: Female

DRUGS (6)
  1. ADVAIR DISKUS 100/50 [Suspect]
     Indication: ASTHMA
     Dosage: 1PUFF TWICE PER DAY
     Route: 055
     Dates: start: 20070601, end: 20070601
  2. SYNTHROID [Concomitant]
  3. PREMARIN [Concomitant]
  4. VITAMIN [Concomitant]
  5. CALCIUM CHLORIDE [Concomitant]
  6. COMBIVENT [Concomitant]

REACTIONS (4)
  - ARTHROPOD BITE [None]
  - ASTHMA [None]
  - DYSPNOEA [None]
  - PHARMACEUTICAL PRODUCT COMPLAINT [None]
